FAERS Safety Report 6400500-9 (Version None)
Quarter: 2009Q4

REPORT INFORMATION
  Report Type: 
  Country: None (occurrence: None)
  Receive Date: 20091014
  Receipt Date: 20091012
  Transmission Date: 20100525
  Serious: Yes (Death, Hospitalization)
  Sender: FDA-Public Use
  Company Number: US-SANOFI-SYNTHELABO-F01200900994

PATIENT
  Sex: Female

DRUGS (4)
  1. FLUOROURACIL [Suspect]
     Dosage: 400 MG/M2
     Route: 040
  2. LEUCOVORIN CALCIUM [Suspect]
     Dosage: 400 MG/M2
     Route: 042
  3. BEVACIZUMAB [Suspect]
     Dosage: 5 MG/KG
     Route: 042
     Dates: start: 20090908, end: 20090908
  4. OXALIPLATIN [Suspect]
     Indication: COLON CANCER
     Dosage: 85 MG/M2
     Route: 042

REACTIONS (6)
  - ATRIAL FIBRILLATION [None]
  - DEHYDRATION [None]
  - DIARRHOEA [None]
  - HYPOTENSION [None]
  - MULTI-ORGAN FAILURE [None]
  - SEPSIS [None]
